FAERS Safety Report 24331561 (Version 1)
Quarter: 2024Q3

REPORT INFORMATION
  Report Type: Spontaneous
  Country: TR (occurrence: TR)
  Receive Date: 20240918
  Receipt Date: 20240918
  Transmission Date: 20241016
  Serious: Yes (Death, Life-Threatening, Hospitalization)
  Sender: ACCORD
  Company Number: TR-MLMSERVICE-20240830-PI177773-00101-1

PATIENT
  Age: 45 Year
  Sex: Male

DRUGS (6)
  1. CISPLATIN [Suspect]
     Active Substance: CISPLATIN
     Indication: Testicular germ cell tumour mixed
     Dosage: 2 CYCLE
  2. ETOPOSIDE [Suspect]
     Active Substance: ETOPOSIDE
     Indication: Testicular germ cell cancer metastatic
     Dosage: 2 CYCLE
  3. BLEOMYCIN [Suspect]
     Active Substance: BLEOMYCIN SULFATE
     Indication: Testicular germ cell cancer metastatic
     Dosage: 2 CYCLE
  4. CISPLATIN [Suspect]
     Active Substance: CISPLATIN
     Indication: Testicular germ cell cancer metastatic
     Dosage: 2 CYCLE
  5. ETOPOSIDE [Suspect]
     Active Substance: ETOPOSIDE
     Indication: Testicular germ cell tumour mixed
     Dosage: 2 CYCLE
  6. BLEOMYCIN [Suspect]
     Active Substance: BLEOMYCIN SULFATE
     Indication: Testicular germ cell tumour mixed
     Dosage: 2 CYCLE

REACTIONS (4)
  - Respiratory failure [Fatal]
  - Atypical haemolytic uraemic syndrome [Fatal]
  - Pulmonary alveolar haemorrhage [Fatal]
  - Acute kidney injury [Fatal]
